FAERS Safety Report 24301145 (Version 2)
Quarter: 2024Q3

REPORT INFORMATION
  Report Type: Spontaneous
  Country: FR (occurrence: FR)
  Receive Date: 20240910
  Receipt Date: 20240918
  Transmission Date: 20241017
  Serious: Yes (Death, Hospitalization)
  Sender: CHEPLAPHARM
  Company Number: FR-ROCHE-10000018779

PATIENT
  Age: 64 Year
  Sex: Male
  Weight: 80 kg

DRUGS (10)
  1. CAPECITABINE [Suspect]
     Active Substance: CAPECITABINE
     Indication: Colorectal cancer metastatic
     Dates: start: 20240503, end: 20240809
  2. ATEZOLIZUMAB [Suspect]
     Active Substance: ATEZOLIZUMAB
     Indication: Colorectal cancer metastatic
     Dates: start: 20240403, end: 20240809
  3. OXALIPLATIN [Suspect]
     Active Substance: OXALIPLATIN
     Indication: Colorectal cancer metastatic
     Dates: start: 20240403, end: 20240809
  4. DEVICE\YTTRIUM Y-90 [Suspect]
     Active Substance: DEVICE\YTTRIUM Y-90
     Indication: Colorectal cancer metastatic
     Dates: start: 20240610
  5. BEVACIZUMAB [Suspect]
     Active Substance: BEVACIZUMAB
     Indication: Colorectal cancer metastatic
     Dates: start: 20240628, end: 20240809
  6. INNOHEP [Concomitant]
     Active Substance: TINZAPARIN SODIUM
     Dates: start: 20240521
  7. FONDAPARINUX [Concomitant]
     Active Substance: FONDAPARINUX
  8. DOLIPRANE [Concomitant]
     Active Substance: ACETAMINOPHEN
  9. HYDROMORPHONE HYDROCHLORIDE [Concomitant]
     Active Substance: HYDROMORPHONE HYDROCHLORIDE
     Dosage: BID?DAILY DOSE: 8 MILLIGRAM
  10. ESOMEPRAZOLE [Concomitant]
     Active Substance: ESOMEPRAZOLE
     Dosage: BID?DAILY DOSE: 40 MILLIGRAM

REACTIONS (3)
  - Device related bacteraemia [Recovering/Resolving]
  - Tumour perforation [Fatal]
  - Tumour fistulisation [Fatal]

NARRATIVE: CASE EVENT DATE: 20240817
